FAERS Safety Report 10206743 (Version 2)
Quarter: 2014Q2

REPORT INFORMATION
  Report Type: Spontaneous
  Country: JP (occurrence: JP)
  Receive Date: 20140530
  Receipt Date: 20140603
  Transmission Date: 20141212
  Serious: Yes (Other)
  Sender: FDA-Public Use
  Company Number: JP-SA-2014SA069722

PATIENT
  Age: 76 Year
  Sex: Female

DRUGS (6)
  1. MYSLEE [Suspect]
     Indication: INSOMNIA
     Route: 048
  2. MYSLEE [Suspect]
     Indication: INSOMNIA
     Route: 048
  3. JZOLOFT [Concomitant]
  4. MYONAL [Concomitant]
  5. LOXONIN [Concomitant]
  6. DEPAS [Concomitant]

REACTIONS (2)
  - VIIth nerve paralysis [Unknown]
  - Intentional product misuse [Unknown]
